FAERS Safety Report 8511557 (Version 3)
Quarter: 2013Q2

REPORT INFORMATION
  Report Type: Spontaneous
  Country: US (occurrence: US)
  Receive Date: 20120413
  Receipt Date: 20130429
  Transmission Date: 20140414
  Serious: No
  Sender: FDA-Public Use
  Company Number: US-ASTRAZENECA-2012SE09982

PATIENT
  Age: 48 Year
  Sex: Male

DRUGS (2)
  1. NEXIUM [Suspect]
     Route: 048
  2. CRESTOR [Suspect]
     Route: 048

REACTIONS (6)
  - Hypertension [Unknown]
  - Pharyngitis [Unknown]
  - Ear infection [Unknown]
  - Gastrooesophageal reflux disease [Unknown]
  - Aphagia [Unknown]
  - Drug dose omission [Unknown]
